FAERS Safety Report 21780762 (Version 1)
Quarter: 2022Q4

REPORT INFORMATION
  Report Type: Spontaneous
  Country: US (occurrence: US)
  Receive Date: 20221227
  Receipt Date: 20221227
  Transmission Date: 20230112
  Serious: No
  Sender: FDA-Public Use
  Company Number: US-ABBVIE-4246324

PATIENT
  Age: 47 Year
  Sex: Female
  Weight: 78.471 kg

DRUGS (6)
  1. SKYRIZI [Suspect]
     Active Substance: RISANKIZUMAB-RZAA
     Indication: Psoriasis
     Route: 058
     Dates: start: 20210924
  2. GABAPENTIN TAB 600MG [Concomitant]
     Indication: Product used for unknown indication
  3. CLOBETASOL LOT 0.05% [Concomitant]
     Indication: Product used for unknown indication
  4. CALCIPOTRIEN CRE 0.005% [Concomitant]
     Indication: Product used for unknown indication
  5. FLUCONAZOLE TAB 50MG [Concomitant]
     Indication: Product used for unknown indication
  6. TACROLIMUS [Concomitant]
     Active Substance: TACROLIMUS
     Indication: Product used for unknown indication

REACTIONS (2)
  - Psoriasis [Recovered/Resolved]
  - Psoriasis [Not Recovered/Not Resolved]

NARRATIVE: CASE EVENT DATE: 20220301
